FAERS Safety Report 21646790 (Version 1)
Quarter: 2022Q4

REPORT INFORMATION
  Report Type: Spontaneous
  Country: FR (occurrence: FR)
  Receive Date: 20221127
  Receipt Date: 20221127
  Transmission Date: 20230113
  Serious: Yes (Hospitalization)
  Sender: FDA-Public Use
  Company Number: None

PATIENT
  Age: 82 Year
  Sex: Male
  Weight: 81 kg

DRUGS (3)
  1. CAPECITABINE [Suspect]
     Active Substance: CAPECITABINE
     Indication: Adenocarcinoma of colon
     Dosage: UNIT DOSE: 2000 MG, FREQUENCY TIME : 1 DAY, DURATION : 1 DAYS, THERAPY START DATE : ASKU
     Dates: end: 20211017
  2. COMIRNATY [Suspect]
     Active Substance: TOZINAMERAN
     Indication: COVID-19 immunisation
     Dosage: R1, UNIT DOSE: 1 DF , FREQUENCY TIME : 1 TOTAL, DURATION : 1 DAYS
     Dates: start: 20211011, end: 20211011
  3. COMIRNATY [Suspect]
     Active Substance: TOZINAMERAN
     Dosage: D1+D2, UNIT DOSE: 1 DF , FREQUENCY TIME : 2 TOTAL, DURATION : 27 DAYS
     Dates: start: 20210304, end: 20210331

REACTIONS (3)
  - Arthritis [Recovered/Resolved]
  - Deep vein thrombosis [Recovered/Resolved]
  - Cholecystitis [Recovered/Resolved]

NARRATIVE: CASE EVENT DATE: 20211027
